FAERS Safety Report 17389232 (Version 1)
Quarter: 2020Q1

REPORT INFORMATION
  Report Type: Spontaneous
  Country: US (occurrence: US)
  Receive Date: 20200123
  Receipt Date: 20200123
  Transmission Date: 20200409
  Serious: Yes (Hospitalization)
  Sender: FDA-Public Use
  Company Number: None

PATIENT
  Age: 73 Year
  Sex: Male

DRUGS (3)
  1. MYCOPHENOLATE 250 CAPSULES ACCORD [Suspect]
     Active Substance: MYCOPHENOLIC ACID
     Route: 048
     Dates: start: 20190315
  2. TACROLIMUS 5MG CAP [Suspect]
     Active Substance: TACROLIMUS
     Route: 048
     Dates: start: 20190215
  3. HYDROCO/APAP [Concomitant]
     Active Substance: ACETAMINOPHEN\HYDROCODONE

REACTIONS (2)
  - Therapy cessation [None]
  - Pneumonia [None]

NARRATIVE: CASE EVENT DATE: 20200123
